FAERS Safety Report 8043013-3 (Version None)
Quarter: 2012Q1

REPORT INFORMATION
  Report Type: 
  Country: None (occurrence: None)
  Receive Date: 20120112
  Receipt Date: 20120109
  Transmission Date: 20120608
  Serious: Yes (Hospitalization, Other)
  Sender: FDA-Public Use
  Company Number: PHEH2011US04153

PATIENT
  Sex: Female
  Weight: 68.934 kg

DRUGS (13)
  1. LISINOPRIL [Concomitant]
     Dosage: UNK
  2. FOLIC ACID [Concomitant]
     Dosage: UNK
  3. ASPIRIN [Concomitant]
     Dosage: UNK
  4. KLOR-CON [Concomitant]
     Dosage: UNK
  5. GLEEVEC [Suspect]
     Indication: CHRONIC MYELOID LEUKAEMIA (IN REMISSION)
     Dosage: 400 MG, DAILY
     Route: 048
     Dates: start: 20110311
  6. GEMZAR [Concomitant]
     Dosage: UNK
  7. XANAX [Concomitant]
     Dosage: UNK
  8. DEXAMETHASONE TAB [Concomitant]
     Dosage: UNK
  9. PRAVASTATIN [Concomitant]
     Dosage: UNK
  10. CHANTIX [Concomitant]
     Dosage: UNK
  11. VALIUM [Concomitant]
     Dosage: UNK
  12. CARBOPLATIN [Concomitant]
     Dosage: UNK
  13. VIT D3 [Concomitant]
     Dosage: UNK

REACTIONS (5)
  - RENAL PAIN [None]
  - CONTUSION [None]
  - RED BLOOD CELL COUNT DECREASED [None]
  - BACK PAIN [None]
  - LUNG NEOPLASM MALIGNANT [None]
